FAERS Safety Report 24685407 (Version 1)
Quarter: 2024Q4

REPORT INFORMATION
  Report Type: Spontaneous
  Country: IT (occurrence: IT)
  Receive Date: 20241202
  Receipt Date: 20241202
  Transmission Date: 20250114
  Serious: Yes (Other)
  Sender: HIKMA
  Company Number: None

PATIENT
  Age: 60 Year
  Sex: Male
  Weight: 79 kg

DRUGS (6)
  1. VANCOMYCIN HYDROCHLORIDE [Suspect]
     Active Substance: VANCOMYCIN HYDROCHLORIDE
     Indication: Antibiotic prophylaxis
     Dosage: 1 DAY AFTER THE FIRST DAY
     Route: 042
     Dates: start: 20241113, end: 20241113
  2. CIPROFLOXACIN [Concomitant]
     Active Substance: CIPROFLOXACIN
     Indication: Antibiotic prophylaxis
     Dosage: 400 MILLIGRAM, QD
     Route: 048
  3. INSULIN HUMAN [Concomitant]
     Active Substance: INSULIN HUMAN
     Indication: Type 2 diabetes mellitus
     Dosage: 1UNIT/HOUR CONTINUOUS INFUSION
     Route: 042
  4. NITROGLYCERIN [Concomitant]
     Active Substance: NITROGLYCERIN
     Indication: Cardiac failure
     Dosage: 40 MCG/MIN
     Route: 042
  5. OMEPRAZOLE [Concomitant]
     Active Substance: OMEPRAZOLE
     Indication: Gastrooesophageal reflux disease
     Dosage: 20 MILLIGRAM, QD
     Route: 048
  6. PROPOFOL [Concomitant]
     Active Substance: PROPOFOL
     Indication: Anaesthesia
     Dosage: 6 ML/H
     Route: 042

REACTIONS (2)
  - Anaphylactic shock [Recovered/Resolved]
  - Hypotension [Recovered/Resolved]

NARRATIVE: CASE EVENT DATE: 20241113
